FAERS Safety Report 15238540 (Version 2)
Quarter: 2018Q3

REPORT INFORMATION
  Report Type: Spontaneous
  Country: US (occurrence: US)
  Receive Date: 20180803
  Receipt Date: 20180827
  Transmission Date: 20181010
  Serious: Yes (Hospitalization, Other)
  Sender: FDA-Public Use
  Company Number: US-PFIZER INC-2018307369

PATIENT
  Age: 59 Year
  Sex: Female

DRUGS (3)
  1. AMOXICILLIN. [Concomitant]
     Active Substance: AMOXICILLIN
     Dosage: 875 MG, DAILY(875MG, 1 TABLET PER DAY FOR 10 DAYS)
     Dates: start: 20170313, end: 20170323
  2. ESTRING [Suspect]
     Active Substance: ESTRADIOL
     Indication: MENOPAUSE
     Dosage: INSERT ONE RING EVERY 90 DAYS
     Dates: start: 2013, end: 2017
  3. ESTRING [Suspect]
     Active Substance: ESTRADIOL
     Indication: VULVOVAGINAL DRYNESS

REACTIONS (6)
  - Malaise [Unknown]
  - Urinary tract infection [Unknown]
  - Influenza [Unknown]
  - Gallbladder cancer [Recovered/Resolved]
  - Pancreatitis acute [Unknown]
  - Septic shock [Unknown]

NARRATIVE: CASE EVENT DATE: 20170330
